FAERS Safety Report 18334911 (Version 1)
Quarter: 2020Q4

REPORT INFORMATION
  Report Type: Spontaneous
  Country: DE (occurrence: DE)
  Receive Date: 20201001
  Receipt Date: 20201001
  Transmission Date: 20210113
  Serious: Yes (Other)
  Sender: FDA-Public Use
  Company Number: DE-PFIZER INC-2020376612

PATIENT

DRUGS (1)
  1. CYTOTEC [Suspect]
     Active Substance: MISOPROSTOL
     Indication: LABOUR INDUCTION
     Dosage: 7 DOSES PER DAY OF AT LEAST 25ML AND MORE
     Dates: start: 20190708, end: 20190709

REACTIONS (3)
  - Foetal exposure during delivery [Unknown]
  - Foetal heart rate decreased [Unknown]
  - Amniocentesis abnormal [Unknown]

NARRATIVE: CASE EVENT DATE: 201907
